FAERS Safety Report 4616106-8 (Version None)
Quarter: 2005Q1

REPORT INFORMATION
  Report Type: 
  Country: None (occurrence: None)
  Receive Date: 20050323
  Receipt Date: 20050311
  Transmission Date: 20050727
  Serious: Yes (Death)
  Sender: FDA-Public Use
  Company Number: 200510643EU

PATIENT
  Sex: Female

DRUGS (11)
  1. CLAFORAN [Suspect]
     Indication: PNEUMONIA
     Route: 042
  2. CLAFORAN [Suspect]
     Indication: URINARY TRACT INFECTION
     Route: 042
  3. ASPIRIN [Concomitant]
  4. CARDURA XL [Concomitant]
  5. ONE-ALPHA [Concomitant]
  6. NOCTAMID [Concomitant]
  7. NEORECORMON [Concomitant]
  8. PROTIUM [Concomitant]
  9. TRENTAL [Concomitant]
  10. PRAXILENE [Concomitant]
  11. ISOKET [Concomitant]

REACTIONS (1)
  - STEVENS-JOHNSON SYNDROME [None]
